FAERS Safety Report 5090663-2 (Version None)
Quarter: 2006Q3

REPORT INFORMATION
  Report Type: 
  Country: None (occurrence: None)
  Receive Date: 20060823
  Receipt Date: 20060816
  Transmission Date: 20061208
  Serious: Yes (Hospitalization, Other)
  Sender: FDA-Public Use
  Company Number: 2006-07-0376

PATIENT
  Age: 50 Year
  Sex: Female

DRUGS (10)
  1. PEG-INTRON [Suspect]
     Indication: HEPATITIS C
     Dosage: SUBCUTANEOUS
     Route: 058
     Dates: start: 20060523
  2. RIBAVIRIN [Suspect]
     Indication: HEPATITIS C
     Dosage: ORAL
     Route: 048
     Dates: start: 20060523
  3. ALBUTEROL SULFATE [Concomitant]
  4. AMBIEN [Concomitant]
  5. FLONASE [Concomitant]
  6. HYDROCODONE TABLETS [Concomitant]
  7. LEXAPRO [Concomitant]
  8. SOMA [Concomitant]
  9. XANAX EXTENDED RELEASE TABLET [Concomitant]
  10. PROCRIT [Concomitant]

REACTIONS (29)
  - ABDOMINAL PAIN [None]
  - ANAEMIA [None]
  - ASTHENIA [None]
  - BACK PAIN [None]
  - CARDIAC FAILURE [None]
  - CONDITION AGGRAVATED [None]
  - CONVULSION [None]
  - DECREASED ACTIVITY [None]
  - DEPRESSION [None]
  - DIARRHOEA [None]
  - DRY MOUTH [None]
  - FALL [None]
  - HAEMORRHOIDS [None]
  - HEADACHE [None]
  - HEART RATE INCREASED [None]
  - IMPAIRED WORK ABILITY [None]
  - INCOHERENT [None]
  - INJECTION SITE ERYTHEMA [None]
  - INJECTION SITE RASH [None]
  - INSOMNIA [None]
  - IRRITABILITY [None]
  - NERVOUSNESS [None]
  - PAIN [None]
  - PARANOIA [None]
  - PHARYNGOLARYNGEAL PAIN [None]
  - STRESS [None]
  - TREMOR [None]
  - VERTIGO [None]
  - VOMITING [None]
